FAERS Safety Report 9992426 (Version 3)
Quarter: 2014Q2

REPORT INFORMATION
  Report Type: Report from Study
  Country: CZ (occurrence: CZ)
  Receive Date: 20140310
  Receipt Date: 20140605
  Transmission Date: 20141212
  Serious: Yes (Death, Hospitalization, Other)
  Sender: FDA-Public Use
  Company Number: CZ-GLAXOSMITHKLINE-B0956610C

PATIENT
  Age: 49 Year
  Sex: Male
  Weight: 75.5 kg

DRUGS (12)
  1. KETONAL [Concomitant]
     Indication: PROCEDURAL PAIN
     Dosage: 100MG AS REQUIRED
     Route: 042
     Dates: start: 20140304, end: 20140304
  2. PERFALGAN [Concomitant]
     Indication: PROCEDURAL PAIN
     Dosage: 1G AS REQUIRED
     Route: 042
     Dates: start: 20140304, end: 20140304
  3. DABRAFENIB [Suspect]
     Indication: METASTATIC MALIGNANT MELANOMA
     Dosage: 150MG TWICE PER DAY
     Route: 048
     Dates: start: 20131220
  4. TRAMETINIB [Suspect]
     Indication: METASTATIC MALIGNANT MELANOMA
     Dosage: 2MG PER DAY
     Route: 048
     Dates: start: 20131220
  5. DILATREND [Concomitant]
     Indication: EJECTION FRACTION DECREASED
     Dosage: 12.5MG TWICE PER DAY
     Route: 048
     Dates: start: 20140117, end: 20140401
  6. PIRAMIL [Concomitant]
     Indication: EJECTION FRACTION DECREASED
     Dosage: 2.5MG TWICE PER DAY
     Route: 048
     Dates: start: 20140117, end: 20140326
  7. CARDILAN [Concomitant]
     Indication: EJECTION FRACTION DECREASED
     Dates: start: 20140117, end: 20140327
  8. NOVALGIN [Concomitant]
     Indication: PAIN
     Dosage: 500MG TWICE PER DAY
     Route: 048
     Dates: start: 20140211, end: 20140325
  9. CEFUROXIME [Concomitant]
     Indication: ANTIBIOTIC PROPHYLAXIS
     Dosage: 500MG TWICE PER DAY
     Route: 048
     Dates: start: 20140301, end: 20140313
  10. FRAXIPARINE [Concomitant]
     Indication: PROPHYLAXIS
     Dosage: .4ML PER DAY
     Route: 058
     Dates: start: 20140303, end: 20140409
  11. FENTANYL [Concomitant]
     Indication: PAIN
     Dosage: 25MG EVERY 3 DAYS
     Route: 061
     Dates: start: 20140319, end: 20140322
  12. PIRITRAMIDE [Concomitant]
     Indication: PROCEDURAL PAIN
     Dosage: 100MG AS REQUIRED
     Route: 058
     Dates: start: 20140304, end: 20140304

REACTIONS (4)
  - Chills [Recovered/Resolved]
  - Pyrexia [Recovered/Resolved]
  - Metastases to lymph nodes [Fatal]
  - Haemorrhage [Fatal]
